FAERS Safety Report 7771927-8 (Version None)
Quarter: 2011Q3

REPORT INFORMATION
  Report Type: 
  Country: None (occurrence: None)
  Receive Date: 20110922
  Receipt Date: 20100920
  Transmission Date: 20111222
  Serious: No
  Sender: FDA-Public Use
  Company Number: US-ASTRAZENECA-2010SE44340

PATIENT
  Age: 32 Year
  Sex: Male
  Weight: 56.7 kg

DRUGS (2)
  1. WELLBUTRIN XL [Concomitant]
  2. SEROQUEL XR [Suspect]
     Indication: BIPOLAR DISORDER
     Route: 048
     Dates: start: 20100401

REACTIONS (4)
  - HYPOTRIGLYCERIDAEMIA [None]
  - HYPERCHOLESTEROLAEMIA [None]
  - LOW DENSITY LIPOPROTEIN INCREASED [None]
  - HIGH DENSITY LIPOPROTEIN DECREASED [None]
